FAERS Safety Report 10339356 (Version 1)
Quarter: 2014Q3

REPORT INFORMATION
  Report Type: Spontaneous
  Country: US (occurrence: US)
  Receive Date: 20140724
  Receipt Date: 20140724
  Transmission Date: 20150326
  Serious: No
  Sender: FDA-Public Use
  Company Number: US-PFIZER INC-2014201883

PATIENT
  Age: 66 Year
  Sex: Male

DRUGS (1)
  1. SUTENT [Suspect]
     Active Substance: SUNITINIB MALATE
     Indication: METASTATIC RENAL CELL CARCINOMA
     Dosage: 50 MG, UNK
     Dates: start: 20130115

REACTIONS (8)
  - Fatigue [Unknown]
  - Myalgia [Unknown]
  - Bone pain [Unknown]
  - Dysgeusia [Unknown]
  - Asthenia [Unknown]
  - Burning sensation [Unknown]
  - Decreased appetite [Unknown]
  - Blood pressure abnormal [Unknown]
